FAERS Safety Report 12696598 (Version 1)
Quarter: 2016Q3

REPORT INFORMATION
  Report Type: Other
  Country: US (occurrence: US)
  Receive Date: 20160830
  Receipt Date: 20160830
  Transmission Date: 20161109
  Serious: Yes (Other)
  Sender: FDA-Public Use
  Company Number: US-SHIRE-US201610639

PATIENT
  Age: 58 Year
  Sex: Female

DRUGS (2)
  1. ANTI-PARKINSON DRUGS [Concomitant]
     Active Substance: UNSPECIFIED INGREDIENT
     Indication: PARKINSON^S DISEASE
     Dosage: UNK, UNKNOWN
     Route: 065
  2. GATTEX [Suspect]
     Active Substance: TEDUGLUTIDE\WATER
     Indication: SHORT-BOWEL SYNDROME
     Dosage: UNK UNK, UNKNOWN
     Route: 058
     Dates: start: 20160813

REACTIONS (2)
  - Parkinson^s disease [Unknown]
  - Nausea [Unknown]

NARRATIVE: CASE EVENT DATE: 201608
